FAERS Safety Report 5276284-7 (Version None)
Quarter: 2007Q1

REPORT INFORMATION
  Report Type: 
  Country: None (occurrence: None)
  Receive Date: 20070326
  Receipt Date: 20070316
  Transmission Date: 20070707
  Serious: Yes (Hospitalization)
  Sender: FDA-Public Use
  Company Number: GB-ABBOTT-07P-167-0356245-00

PATIENT
  Sex: Female
  Weight: 49.8 kg

DRUGS (2)
  1. HUMIRA [Suspect]
     Indication: CROHN'S DISEASE
     Dates: end: 20061228
  2. HUMIRA [Suspect]
     Dates: start: 20070128

REACTIONS (2)
  - CROHN'S DISEASE [None]
  - RESPIRATORY TRACT INFECTION [None]
